FAERS Safety Report 21643069 (Version 1)
Quarter: 2022Q4

REPORT INFORMATION
  Report Type: Spontaneous
  Country: DE (occurrence: None)
  Receive Date: 20221125
  Receipt Date: 20221125
  Transmission Date: 20230113
  Serious: Yes (Other)
  Sender: FDA-Public Use
  Company Number: DE-ROCHE-3225208

PATIENT
  Age: 72 Year
  Sex: Female
  Weight: 39 kg

DRUGS (7)
  1. ALECTINIB [Suspect]
     Active Substance: ALECTINIB
     Indication: Non-small cell lung cancer
     Route: 065
  2. LORLATINIB [Suspect]
     Active Substance: LORLATINIB
     Indication: Non-small cell lung cancer
     Route: 048
     Dates: start: 20220422, end: 20220504
  3. LORLATINIB [Suspect]
     Active Substance: LORLATINIB
     Route: 048
     Dates: start: 20220505
  4. LEVETIRACETAM [Concomitant]
     Active Substance: LEVETIRACETAM
     Indication: Seizure
     Dates: start: 2018
  5. CARBIMAZOLE [Concomitant]
     Active Substance: CARBIMAZOLE
     Dates: start: 2018
  6. AMILORIDE [Concomitant]
     Active Substance: AMILORIDE
  7. RAMIPRIL [Concomitant]
     Active Substance: RAMIPRIL
     Dates: start: 201612

REACTIONS (3)
  - Neoplasm progression [Unknown]
  - Hallucination, visual [Recovering/Resolving]
  - Speech disorder [Recovering/Resolving]

NARRATIVE: CASE EVENT DATE: 20220424
